FAERS Safety Report 7428494-8 (Version None)
Quarter: 2011Q2

REPORT INFORMATION
  Report Type: 
  Country: None (occurrence: None)
  Receive Date: 20110413
  Receipt Date: 20110330
  Transmission Date: 20111010
  Serious: Yes (Other)
  Sender: FDA-Public Use
  Company Number: ERD2011A00133

PATIENT
  Age: 63 Year
  Sex: Female

DRUGS (7)
  1. BROTIZOLAM (BROTIZOLAM) [Concomitant]
  2. PIOGLITAZONE HYDROCHLORIDE/METFROMIN HYDROCHLORIDE [Suspect]
     Indication: DIABETES MELLITUS
     Dosage: 850 MG + 15 MG (1 IN 1 D) ORAL
     Route: 048
     Dates: start: 20110203, end: 20110303
  3. ESCITALOPRAM OXALATE [Concomitant]
  4. CLOMIPRAMINE HCL [Concomitant]
  5. PAROXETINE HYDROCHLORIDE ANHYDROUS (PAROXETINE HYDROCHLORIDE) [Concomitant]
  6. RABEPRAZOLE SODIUM [Concomitant]
  7. CAPTOPRIL [Concomitant]

REACTIONS (2)
  - CONDITION AGGRAVATED [None]
  - HYPERTENSION [None]
